FAERS Safety Report 8586412-3 (Version None)
Quarter: 2012Q3

REPORT INFORMATION
  Report Type: 
  Country: None (occurrence: None)
  Receive Date: 20120810
  Receipt Date: 20120718
  Transmission Date: 20120928
  Serious: Yes (Hospitalization, Other)
  Sender: FDA-Public Use
  Company Number: JP-009507513-1208JPN004506

PATIENT

DRUGS (7)
  1. TELAVIC [Suspect]
     Route: 048
     Dates: start: 20120417
  2. REBETOL [Suspect]
     Route: 048
     Dates: start: 20120229
  3. REBETOL [Suspect]
     Route: 048
     Dates: start: 20120403
  4. TELAVIC [Suspect]
     Indication: HEPATITIS C
     Route: 048
     Dates: start: 20120215, end: 20120416
  5. REBETOL [Suspect]
     Indication: HEPATITIS C
     Route: 048
     Dates: start: 20120215, end: 20120228
  6. PEG-INTRON [Suspect]
     Dosage: 1.5MCG/KG
     Route: 058
     Dates: start: 20120424
  7. PEG-INTRON [Suspect]
     Indication: HEPATITIS C
     Dosage: 1.5MCG/KG/WEEK
     Route: 058
     Dates: start: 20120215, end: 20120410

REACTIONS (6)
  - RENAL IMPAIRMENT [None]
  - ANAEMIA [None]
  - OEDEMA DUE TO HEPATIC DISEASE [None]
  - RASH [None]
  - ASCITES [None]
  - CELLULITIS [None]
